FAERS Safety Report 18379144 (Version 1)
Quarter: 2020Q4

REPORT INFORMATION
  Report Type: Spontaneous
  Country: US (occurrence: US)
  Receive Date: 20201014
  Receipt Date: 20201014
  Transmission Date: 20210114
  Serious: Yes (Life-Threatening, Hospitalization, Other)
  Sender: FDA-Public Use
  Company Number: US-MSNLABS-2020MSNLIT00381

PATIENT
  Age: 79 Year
  Sex: Female

DRUGS (3)
  1. TERIFLUNOMIDE TABLETS 14 MG [Suspect]
     Active Substance: TERIFLUNOMIDE
     Dosage: 14 MG, QOD
     Route: 048
     Dates: start: 2019, end: 20200402
  2. TERIFLUNOMIDE TABLETS 14 MG [Suspect]
     Active Substance: TERIFLUNOMIDE
     Indication: SECONDARY PROGRESSIVE MULTIPLE SCLEROSIS
     Route: 048
     Dates: start: 201709, end: 2019
  3. TERIFLUNOMIDE TABLETS 14 MG [Suspect]
     Active Substance: TERIFLUNOMIDE
     Dosage: 14MG, EVERY OTHER DAY
     Route: 048
     Dates: start: 20200415

REACTIONS (3)
  - Transaminases increased [Recovered/Resolved]
  - Pyelonephritis [Recovered/Resolved]
  - Klebsiella sepsis [Recovered/Resolved]

NARRATIVE: CASE EVENT DATE: 201911
